FAERS Safety Report 6662051-6 (Version None)
Quarter: 2010Q1

REPORT INFORMATION
  Report Type: 
  Country: None (occurrence: None)
  Receive Date: 20100331
  Receipt Date: 20100303
  Transmission Date: 20100710
  Serious: No
  Sender: FDA-Public Use
  Company Number: US-JNJFOC-20100301615

PATIENT
  Age: 16 Year
  Sex: Male

DRUGS (1)
  1. INVEGA [Suspect]
     Indication: AUTISM
     Route: 048

REACTIONS (1)
  - VOMITING [None]
